FAERS Safety Report 17750029 (Version 1)
Quarter: 2020Q2

REPORT INFORMATION
  Report Type: Spontaneous
  Country: US (occurrence: US)
  Receive Date: 20200506
  Receipt Date: 20200506
  Transmission Date: 20200714
  Serious: No
  Sender: FDA-Public Use
  Company Number: US-BAYER-2020-069612

PATIENT
  Age: 99 Year
  Sex: Female

DRUGS (3)
  1. CHOLESTEROL CARE [Concomitant]
  2. HERBAL WATER PILL [Concomitant]
  3. MIRALAX [Suspect]
     Active Substance: POLYETHYLENE GLYCOL 3350
     Indication: GASTROINTESTINAL DISORDER
     Dosage: THE DOSAGE WITH 4OZ OF APPLE JUICE
     Route: 048
     Dates: end: 20200420

REACTIONS (1)
  - Gastrooesophageal reflux disease [Recovered/Resolved]

NARRATIVE: CASE EVENT DATE: 20200220
